FAERS Safety Report 9596371 (Version 2)
Quarter: 2014Q2

REPORT INFORMATION
  Report Type: Spontaneous
  Country: IT (occurrence: IT)
  Receive Date: 20131004
  Receipt Date: 20140418
  Transmission Date: 20141212
  Serious: Yes (Other)
  Sender: FDA-Public Use
  Company Number: IT-SA-2013SA096543

PATIENT
  Age: 80 Year
  Sex: Male

DRUGS (26)
  1. TRIATEC [Suspect]
     Indication: DRUG ABUSE
     Route: 048
  2. TRIATEC [Suspect]
     Indication: PRODUCT USED FOR UNKNOWN INDICATION
     Route: 048
  3. TRIATEC [Suspect]
     Indication: DRUG ABUSE
     Route: 048
     Dates: start: 20130919, end: 20130919
  4. TRIATEC [Suspect]
     Indication: PRODUCT USED FOR UNKNOWN INDICATION
     Route: 048
     Dates: start: 20130919, end: 20130919
  5. LASIX [Suspect]
     Indication: DRUG ABUSE
     Route: 048
  6. LASIX [Suspect]
     Indication: PRODUCT USED FOR UNKNOWN INDICATION
     Route: 048
  7. LASIX [Suspect]
     Indication: DRUG ABUSE
     Route: 048
     Dates: start: 20130919, end: 20130919
  8. LASIX [Suspect]
     Indication: PRODUCT USED FOR UNKNOWN INDICATION
     Route: 048
     Dates: start: 20130919, end: 20130919
  9. TOTALIP [Suspect]
     Indication: DRUG ABUSE
     Route: 048
  10. TOTALIP [Suspect]
     Indication: PRODUCT USED FOR UNKNOWN INDICATION
     Route: 048
  11. TOTALIP [Suspect]
     Indication: DRUG ABUSE
     Route: 048
     Dates: start: 20130919, end: 20130919
  12. TOTALIP [Suspect]
     Indication: PRODUCT USED FOR UNKNOWN INDICATION
     Route: 048
     Dates: start: 20130919, end: 20130919
  13. EUTIROX [Suspect]
     Indication: DRUG ABUSE
     Route: 048
  14. EUTIROX [Suspect]
     Indication: PRODUCT USED FOR UNKNOWN INDICATION
     Route: 048
  15. EUTIROX [Suspect]
     Indication: DRUG ABUSE
     Route: 048
     Dates: start: 20130919, end: 20130919
  16. EUTIROX [Suspect]
     Indication: PRODUCT USED FOR UNKNOWN INDICATION
     Route: 048
     Dates: start: 20130919, end: 20130919
  17. AXAGON [Suspect]
     Indication: DRUG ABUSE
     Route: 048
  18. AXAGON [Suspect]
     Indication: PRODUCT USED FOR UNKNOWN INDICATION
     Route: 048
  19. AXAGON [Suspect]
     Indication: DRUG ABUSE
     Route: 048
     Dates: start: 20130919, end: 20130919
  20. AXAGON [Suspect]
     Indication: PRODUCT USED FOR UNKNOWN INDICATION
     Route: 048
     Dates: start: 20130919, end: 20130919
  21. TOLEP [Suspect]
     Indication: DRUG ABUSE
     Route: 048
  22. TOLEP [Suspect]
     Indication: PRODUCT USED FOR UNKNOWN INDICATION
     Route: 048
  23. TOLEP [Suspect]
     Indication: DRUG ABUSE
     Route: 048
     Dates: start: 20130919, end: 20130919
  24. TOLEP [Suspect]
     Indication: PRODUCT USED FOR UNKNOWN INDICATION
     Route: 048
     Dates: start: 20130919, end: 20130919
  25. TIKLID [Concomitant]
     Dosage: STRENGTH: 250 MG
     Route: 048
  26. CONGESCOR [Concomitant]
     Dosage: STRENGTH: 2.5 MG
     Route: 048

REACTIONS (5)
  - Limb injury [Recovering/Resolving]
  - Facial bones fracture [Recovering/Resolving]
  - Fall [Unknown]
  - Drug abuse [Unknown]
  - Intentional self-injury [Unknown]
